FAERS Safety Report 20786565 (Version 2)
Quarter: 2022Q3

REPORT INFORMATION
  Report Type: Other
  Country: CH (occurrence: CH)
  Receive Date: 20220505
  Receipt Date: 20220711
  Transmission Date: 20221026
  Serious: Yes (Other)
  Sender: FDA-Public Use
  Company Number: CH-002147023-NVSC2022CH096021

PATIENT
  Age: 93 Year
  Sex: Female

DRUGS (1)
  1. RANIBIZUMAB [Suspect]
     Active Substance: RANIBIZUMAB
     Indication: Neovascular age-related macular degeneration
     Dosage: UNK (IN RIGHT EYE) (25 INJECTIONS)
     Route: 050

REACTIONS (5)
  - Type III immune complex mediated reaction [Unknown]
  - Cutaneous vasculitis [Unknown]
  - Haematuria [Unknown]
  - Proteinuria [Unknown]
  - Palpable purpura [Unknown]
